FAERS Safety Report 5323722-7 (Version None)
Quarter: 2007Q2

REPORT INFORMATION
  Report Type: 
  Country: None (occurrence: None)
  Receive Date: 20070514
  Receipt Date: 20070511
  Transmission Date: 20071010
  Serious: Yes (Life-Threatening, Other)
  Sender: FDA-Public Use
  Company Number: US-BRISTOL-MYERS SQUIBB COMPANY-12955647

PATIENT
  Age: 56 Year
  Sex: Male

DRUGS (4)
  1. PARAPLATIN [Suspect]
     Indication: NON-SMALL CELL LUNG CANCER
     Dosage: 1ST DOSE: 29MAR2005. ADD'L LOT #'S: 4CB4529 (EXP. 01DEC2005), 4D77477 (EXP. 01FEB2006)
     Route: 041
     Dates: start: 20050426, end: 20050426
  2. ABRAXANE [Suspect]
     Indication: NON-SMALL CELL LUNG CANCER
     Route: 041
     Dates: start: 20050426, end: 20050426
  3. CEFOPERAZONE SODIUM+SULBACTAM [Concomitant]
  4. POLYVIDONE [Concomitant]

REACTIONS (3)
  - BRONCHOPLEURAL FISTULA [None]
  - HYDROPNEUMOTHORAX [None]
  - NEUTROPENIA [None]
